FAERS Safety Report 5705932-X (Version None)
Quarter: 2008Q2

REPORT INFORMATION
  Report Type: 
  Country: None (occurrence: None)
  Receive Date: 20080415
  Receipt Date: 20080403
  Transmission Date: 20081010
  Serious: Yes (Hospitalization, Other)
  Sender: FDA-Public Use
  Company Number: NL-ROCHE-558282

PATIENT
  Age: 60 Year
  Sex: Male

DRUGS (3)
  1. CAPECITABINE [Suspect]
     Indication: ADENOCARCINOMA
     Route: 065
  2. AVASTIN [Suspect]
     Indication: ADENOCARCINOMA
     Route: 065
  3. OXALIPLATIN [Suspect]
     Indication: ADENOCARCINOMA
     Route: 065

REACTIONS (2)
  - LIVER ABSCESS [None]
  - SEPSIS [None]
